FAERS Safety Report 5234763-2 (Version None)
Quarter: 2007Q1

REPORT INFORMATION
  Report Type: 
  Country: None (occurrence: None)
  Receive Date: 20070209
  Receipt Date: 20070130
  Transmission Date: 20070707
  Serious: Yes (Hospitalization, Other)
  Sender: FDA-Public Use
  Company Number: GB-ELI_LILLY_AND_COMPANY-GB200701003123

PATIENT
  Age: 74 Year
  Sex: Male

DRUGS (7)
  1. GEMCITABINE HCL [Suspect]
     Indication: PANCREATIC CARCINOMA
     Dosage: 2000 MG, UNK
     Route: 042
  2. ASPIRIN [Concomitant]
     Dosage: 75 MG, DAILY (1/D)
     Route: 048
  3. ATENOLOL [Concomitant]
     Dosage: 100 MG, DAILY (1/D)
     Route: 048
  4. BENDROFLUAZIDE [Concomitant]
     Dosage: 2.5 MG, DAILY (1/D)
     Route: 048
  5. METOCLOPRAMIDE [Concomitant]
     Dosage: 10 MG, UNK
     Route: 042
  6. METOCLOPRAMIDE [Concomitant]
     Dosage: 30 MG, UNK
     Route: 048
  7. NIFEDIPINE [Concomitant]
     Dosage: 10 MG, DAILY (1/D)
     Route: 048

REACTIONS (8)
  - BLOOD ALBUMIN DECREASED [None]
  - BLOOD CREATININE INCREASED [None]
  - BLOOD UREA INCREASED [None]
  - HAEMATURIA [None]
  - OEDEMA [None]
  - PLEURAL EFFUSION [None]
  - PROTEINURIA [None]
  - RENAL FAILURE [None]
